FAERS Safety Report 13438582 (Version 3)
Quarter: 2017Q2

REPORT INFORMATION
  Report Type: Spontaneous
  Country: US (occurrence: US)
  Receive Date: 20170413
  Receipt Date: 20170525
  Transmission Date: 20170830
  Serious: No
  Sender: FDA-Public Use
  Company Number: US-PFIZER INC-897176

PATIENT
  Age: 67 Year
  Sex: Male
  Weight: 68.3 kg

DRUGS (1)
  1. EPINEPHRINE/LIDOCAINE HYDROCHLORIDE [Suspect]
     Active Substance: EPINEPHRINE\LIDOCAINE HYDROCHLORIDE
     Indication: CARDIAC PACEMAKER INSERTION
     Dosage: UNKNOWN,UNKNOWN
     Route: 065
     Dates: start: 20110421, end: 20110421

REACTIONS (1)
  - Drug ineffective [Recovered/Resolved]

NARRATIVE: CASE EVENT DATE: 20110421
